FAERS Safety Report 6788460-2 (Version None)
Quarter: 2010Q2

REPORT INFORMATION
  Report Type: 
  Country: None (occurrence: None)
  Receive Date: 20100623
  Receipt Date: 20080310
  Transmission Date: 20101027
  Serious: Yes (Hospitalization)
  Sender: FDA-Public Use
  Company Number: US-PFIZER INC-2008022419

PATIENT
  Sex: Female
  Weight: 75.3 kg

DRUGS (2)
  1. DOSTINEX [Suspect]
     Indication: PITUITARY TUMOUR
     Dosage: 2 EVERY 1 WEEKS
     Dates: end: 20080301
  2. DOSTINEX [Suspect]
     Indication: BLOOD PROLACTIN INCREASED

REACTIONS (1)
  - PSYCHOTIC DISORDER [None]
